FAERS Safety Report 6965111-5 (Version None)
Quarter: 2010Q3

REPORT INFORMATION
  Report Type: 
  Country: None (occurrence: None)
  Receive Date: 20100903
  Receipt Date: 20100826
  Transmission Date: 20110219
  Serious: Yes (Hospitalization)
  Sender: FDA-Public Use
  Company Number: US-ELI_LILLY_AND_COMPANY-US201008005536

PATIENT
  Sex: Female
  Weight: 47.7 kg

DRUGS (3)
  1. GEMCITABINE HCL [Suspect]
     Indication: MALIGNANT PERITONEAL NEOPLASM
     Dosage: 1000 MG/M2 (1248 MG), DAYS 1 + 15 EVERY 28 DAYS
     Route: 042
     Dates: end: 20100517
  2. CARBOPLATIN [Suspect]
     Indication: MALIGNANT PERITONEAL NEOPLASM
     Dosage: 3 AUC (227 MG), DAYS 1 + 15 EVERY 28 DAYS
     Route: 042
     Dates: end: 20100517
  3. BEVACIZUMAB [Suspect]
     Indication: MALIGNANT PERITONEAL NEOPLASM
     Dosage: 10 MG/KG (505 MG), DAYS 1 + 15 EVERY 28 DAYS
     Route: 042
     Dates: end: 20100517

REACTIONS (2)
  - MALIGNANT NEOPLASM PROGRESSION [None]
  - MALIGNANT PERITONEAL NEOPLASM [None]
